FAERS Safety Report 12722044 (Version 4)
Quarter: 2016Q4

REPORT INFORMATION
  Report Type: Spontaneous
  Country: US (occurrence: US)
  Receive Date: 20160907
  Receipt Date: 20161018
  Transmission Date: 20170207
  Serious: Yes (Other)
  Sender: FDA-Public Use
  Company Number: US-PFIZER INC-2016414843

PATIENT
  Age: 39 Year
  Sex: Male

DRUGS (3)
  1. PREDNISONE. [Suspect]
     Active Substance: PREDNISONE
     Dosage: UNK
     Route: 048
  2. CORTICOTROPIN [Suspect]
     Active Substance: CORTICOTROPIN
     Dosage: UNK
  3. HYDROCORTISONE ACETATE. [Suspect]
     Active Substance: HYDROCORTISONE ACETATE
     Dosage: UNK

REACTIONS (7)
  - Pyrexia [Unknown]
  - Palpitations [Unknown]
  - Abdominal pain [Unknown]
  - Myocardial ischaemia [Unknown]
  - Cardiac failure congestive [Unknown]
  - Blood catecholamines abnormal [Unknown]
  - Hypertension [Unknown]
